FAERS Safety Report 20540931 (Version 1)
Quarter: 2022Q1

REPORT INFORMATION
  Report Type: Spontaneous
  Country: CN (occurrence: CN)
  Receive Date: 20220302
  Receipt Date: 20220302
  Transmission Date: 20220423
  Serious: Yes (Other)
  Sender: FDA-Public Use
  Company Number: CN-BAYER-2021A223556

PATIENT
  Age: 75 Year
  Sex: Male
  Weight: 55 kg

DRUGS (1)
  1. XARELTO [Suspect]
     Active Substance: RIVAROXABAN
     Indication: Venous thrombosis
     Dosage: 10 MG, QD
     Route: 048
     Dates: start: 20210916, end: 20210922

REACTIONS (7)
  - Mouth haemorrhage [Recovering/Resolving]
  - Mouth ulceration [Recovering/Resolving]
  - Genital haemorrhage [Recovering/Resolving]
  - Perineal ulceration [Recovering/Resolving]
  - Prescribed underdose [Unknown]
  - Product prescribing issue [Unknown]
  - Inappropriate schedule of product administration [Unknown]

NARRATIVE: CASE EVENT DATE: 20210916
